FAERS Safety Report 9248850 (Version 1)
Quarter: 2013Q1

REPORT INFORMATION
  Report Type: Spontaneous
  Country: US (occurrence: None)
  Receive Date: 20130305
  Receipt Date: 20130305
  Transmission Date: 20140127
  Serious: Yes (Other)
  Sender: FDA-Public Use
  Company Number: 163-21880-12053301

PATIENT
  Age: 67 Year
  Sex: Female

DRUGS (9)
  1. REVLIMID [Suspect]
     Indication: PLASMA CELL MYELOMA
     Dosage: TEMPORARILY INTERRUPTED
     Route: 048
     Dates: start: 20120308
  2. DEXAMETHASONE (DEXAMETHASONE) (UNKNOWN) [Concomitant]
  3. BUTALBITAL-APAP-CAFFEINE (AXOTAL (OLD FORM)) (UNKNOWN) [Concomitant]
  4. PHENERGAN (PROMETHAZINE HYDROCHLORIDE) (UNKNOWN) [Concomitant]
  5. RANITIDINE HCL (RANITIDINE HYDROCHLORIDE) (UNKNOWN) [Concomitant]
  6. NABUMETONE (NABUMETONE) (UNKNOWN) [Concomitant]
  7. TRAMADOL HCL (TRAMADOL HYDROCHLORIDE) (UNKNOWN) [Concomitant]
  8. NEXIUM (ESOMEPRAZOLE) (UNKNOWN) [Concomitant]
  9. ATENOLOL (ATENOLOL) (UNKNOWN) [Concomitant]

REACTIONS (1)
  - Full blood count decreased [None]
